FAERS Safety Report 16830845 (Version 1)
Quarter: 2019Q3

REPORT INFORMATION
  Report Type: Spontaneous
  Country: US (occurrence: US)
  Receive Date: 20190920
  Receipt Date: 20190920
  Transmission Date: 20191005
  Serious: Yes (Hospitalization)
  Sender: FDA-Public Use
  Company Number: US-ABBVIE-19K-163-2928505-00

PATIENT
  Age: 53 Year
  Sex: Male
  Weight: 115.77 kg

DRUGS (1)
  1. HUMIRA [Suspect]
     Active Substance: ADALIMUMAB
     Indication: PSORIASIS
     Dosage: HUMIRA DISCONTINUED TWO MONTHS AGO/ 35 DAYS AGO.
     Route: 058
     Dates: start: 201907, end: 20190812

REACTIONS (4)
  - Mobility decreased [Recovering/Resolving]
  - Device issue [Unknown]
  - Back pain [Recovering/Resolving]
  - Wrong technique in product usage process [Unknown]

NARRATIVE: CASE EVENT DATE: 201908
